FAERS Safety Report 15700403 (Version 1)
Quarter: 2018Q4

REPORT INFORMATION
  Report Type: Spontaneous
  Country: FR (occurrence: FR)
  Receive Date: 20181207
  Receipt Date: 20181207
  Transmission Date: 20190205
  Serious: Yes (Other)
  Sender: FDA-Public Use
  Company Number: PHHY2018FR167062

PATIENT
  Sex: Female

DRUGS (1)
  1. COSENTYX [Suspect]
     Active Substance: SECUKINUMAB
     Indication: ANKYLOSING SPONDYLITIS
     Dosage: 150 MG, UNK
     Route: 065
     Dates: start: 201809, end: 20181005

REACTIONS (5)
  - Diarrhoea haemorrhagic [Unknown]
  - Colitis [Unknown]
  - Hepatocellular injury [Unknown]
  - Abdominal pain [Unknown]
  - Diarrhoea [Unknown]
